FAERS Safety Report 6476681-8 (Version None)
Quarter: 2009Q4

REPORT INFORMATION
  Report Type: 
  Country: None (occurrence: None)
  Receive Date: 20091204
  Receipt Date: 20091204
  Transmission Date: 20100525
  Serious: Yes (Hospitalization)
  Sender: FDA-Public Use
  Company Number: None

PATIENT
  Sex: Male
  Weight: 119.2 kg

DRUGS (1)
  1. ALIMTA [Suspect]
     Dosage: 500 MG
     Dates: end: 20091105

REACTIONS (2)
  - DYSSTASIA [None]
  - OEDEMA PERIPHERAL [None]
